FAERS Safety Report 9178800 (Version 2)
Quarter: 2014Q3

REPORT INFORMATION
  Report Type: Spontaneous
  Country: US (occurrence: US)
  Receive Date: 20130321
  Receipt Date: 20140708
  Transmission Date: 20150326
  Serious: Yes (Other)
  Sender: FDA-Public Use
  Company Number: US-ROCHE-802961

PATIENT
  Age: 15 Year
  Sex: Female
  Weight: 65.38 kg

DRUGS (2)
  1. ACCUTANE [Suspect]
     Active Substance: ISOTRETINOIN
     Route: 065
  2. ACCUTANE [Suspect]
     Active Substance: ISOTRETINOIN
     Indication: ACNE
     Route: 065
     Dates: start: 19990325, end: 19990629

REACTIONS (6)
  - Colitis ulcerative [Unknown]
  - Emotional distress [Unknown]
  - Uveitis [Unknown]
  - Dry skin [Unknown]
  - Crohn^s disease [Unknown]
  - Lip dry [Unknown]

NARRATIVE: CASE EVENT DATE: 19990414
